FAERS Safety Report 4832922-1 (Version None)
Quarter: 2005Q4

REPORT INFORMATION
  Report Type: 
  Country: None (occurrence: None)
  Receive Date: 20051121
  Receipt Date: 20050930
  Transmission Date: 20060501
  Serious: Yes (Hospitalization)
  Sender: FDA-Public Use
  Company Number: US-MERCK-0510USA00707

PATIENT
  Age: 76 Year
  Sex: Female
  Weight: 95 kg

DRUGS (7)
  1. VIOXX [Suspect]
     Indication: ARTHRITIS
     Route: 048
     Dates: start: 20011219, end: 20030419
  2. INDERAL [Concomitant]
     Route: 065
  3. MINOXIDIL 2% [Concomitant]
     Route: 065
  4. TIAZAC [Concomitant]
     Route: 065
  5. TOPROL-XL [Concomitant]
     Route: 065
  6. [THERAPY UNSPECIFIED] [Concomitant]
     Route: 065
  7. TOPROL-XL [Concomitant]
     Route: 065

REACTIONS (2)
  - HYPERTENSION [None]
  - ISCHAEMIC STROKE [None]
